FAERS Safety Report 10174372 (Version 1)
Quarter: 2014Q2

REPORT INFORMATION
  Report Type: Spontaneous
  Country: US (occurrence: US)
  Receive Date: 20140515
  Receipt Date: 20140515
  Transmission Date: 20141212
  Serious: No
  Sender: FDA-Public Use
  Company Number: US-SHIRE-US201402139

PATIENT
  Age: 90 Year
  Sex: Female
  Weight: 68.27 kg

DRUGS (6)
  1. PENTASA [Suspect]
     Indication: CROHN^S DISEASE
     Dosage: 2000 MG (FOUR 500 MG CAPSULES), 1X/DAY:QD
     Route: 048
     Dates: start: 2013
  2. PENTASA [Suspect]
     Dosage: 4000 MG (FOUR 500 MG CAPSULES), 2X/DAY:BID (MORNING AND EVENING)
     Route: 048
     Dates: start: 201404
  3. PLAVIX [Concomitant]
     Indication: PRODUCT USED FOR UNKNOWN INDICATION
     Dosage: 75 MG, 1X/DAY:QD
     Route: 065
  4. OTHER THERAPEUTIC PRODUCTS [Concomitant]
     Indication: BLOOD CHOLESTEROL
     Dosage: UNK, UNKNOWN
     Route: 065
  5. OTHER THERAPEUTIC PRODUCTS [Concomitant]
     Indication: HYPERTENSION
  6. APAP [Concomitant]
     Indication: PRODUCT USED FOR UNKNOWN INDICATION
     Dosage: UNK, AS REQ^D
     Route: 065

REACTIONS (7)
  - Nasopharyngitis [Recovering/Resolving]
  - Fatigue [Not Recovered/Not Resolved]
  - Influenza [Recovering/Resolving]
  - Respiratory tract infection [Recovering/Resolving]
  - Abdominal pain upper [Not Recovered/Not Resolved]
  - Asthenia [Not Recovered/Not Resolved]
  - Off label use [Not Recovered/Not Resolved]
